FAERS Safety Report 8986107 (Version 1)
Quarter: 2012Q4

REPORT INFORMATION
  Report Type: Spontaneous
  Country: CA (occurrence: None)
  Receive Date: 20121004
  Receipt Date: 20121004
  Transmission Date: 20130627
  Serious: Yes (Other)
  Sender: FDA-Public Use
  Company Number: 218970

PATIENT
  Age: 74 Year
  Sex: Female

DRUGS (6)
  1. DAIVONEX (CALCIPOTRIOL) [Suspect]
     Indication: PSORIASIS
  2. AMILORIDE (AMILORIDE) [Concomitant]
  3. ATENOLOL (ATENOLOL) [Concomitant]
  4. FUROSEMIDE (FUROSEMIDE) [Concomitant]
  5. SERTRALINE (SERTRALINE) (SERTRALINE) [Concomitant]
  6. LEVOTHYROXINE (LEVOTHYROXINE) [Concomitant]

REACTIONS (3)
  - Biliary cirrhosis primary [None]
  - Antimitochondrial antibody positive [None]
  - Blood cholesterol increased [None]
